FAERS Safety Report 7490714-1 (Version None)
Quarter: 2011Q2

REPORT INFORMATION
  Report Type: 
  Country: None (occurrence: None)
  Receive Date: 20110517
  Receipt Date: 20110517
  Transmission Date: 20111010
  Serious: Yes (Hospitalization)
  Sender: FDA-Public Use
  Company Number: None

PATIENT
  Age: 62 Year
  Sex: Male

DRUGS (1)
  1. IFOSFAMIDE [Suspect]
     Indication: SARCOMA
     Dosage: 4.2G IV
     Route: 042
     Dates: start: 20110501, end: 20110501

REACTIONS (2)
  - RENAL FAILURE ACUTE [None]
  - MENTAL STATUS CHANGES [None]
